FAERS Safety Report 4277412-2 (Version None)
Quarter: 2004Q1

REPORT INFORMATION
  Report Type: 
  Country: None (occurrence: None)
  Receive Date: 20040122
  Receipt Date: 20040114
  Transmission Date: 20041129
  Serious: Yes (Other)
  Sender: FDA-Public Use
  Company Number: CA-GLAXOSMITHKLINE-A0494028A

PATIENT
  Age: 24 Year
  Sex: Female
  Weight: 128.2 kg

DRUGS (3)
  1. ZYBAN [Suspect]
     Dosage: 150MG SEE DOSAGE TEXT
     Route: 048
     Dates: start: 20040108
  2. BIRTH CONTROL [Concomitant]
     Route: 048
  3. HERBAL MULTIVITAMIN [Concomitant]

REACTIONS (3)
  - DIPLOPIA [None]
  - VISION BLURRED [None]
  - VISUAL ACUITY REDUCED [None]
